FAERS Safety Report 4907088-X (Version None)
Quarter: 2006Q1

REPORT INFORMATION
  Report Type: 
  Country: None (occurrence: None)
  Receive Date: 20060206
  Receipt Date: 20060123
  Transmission Date: 20060701
  Serious: Yes (Other)
  Sender: FDA-Public Use
  Company Number: 2006003354

PATIENT
  Age: 13 Year
  Sex: Male
  Weight: 98.7 kg

DRUGS (5)
  1. GENOTROPIN [Suspect]
     Indication: HYPOPITUITARISM
     Dosage: SUBCUTANEOUS
     Route: 058
     Dates: start: 20041001
  2. THYROXINE (LEVOTHYROXINE) [Concomitant]
  3. DESMOPRESSIN ACETATE [Concomitant]
  4. CORTISOL [Concomitant]
  5. METFORMIN HCL [Concomitant]

REACTIONS (1)
  - PETIT MAL EPILEPSY [None]
